FAERS Safety Report 18568955 (Version 20)
Quarter: 2024Q1

REPORT INFORMATION
  Report Type: Spontaneous
  Country: US (occurrence: US)
  Receive Date: 20201202
  Receipt Date: 20240109
  Transmission Date: 20240410
  Serious: Yes (Disabling, Other)
  Sender: FDA-Public Use
  Company Number: US-PFIZER INC-2020468233

PATIENT
  Age: 71 Year
  Sex: Female
  Weight: 92.99 kg

DRUGS (25)
  1. ESTRING [Suspect]
     Active Substance: ESTRADIOL
     Indication: Atrophic vulvovaginitis
     Dosage: UNK
     Route: 067
     Dates: start: 2016
  2. ESTRING [Suspect]
     Active Substance: ESTRADIOL
     Indication: Oestrogen replacement therapy
     Dosage: 2 MG, EVERY 90 DAYS
     Route: 067
     Dates: start: 2018
  3. ESTRING [Suspect]
     Active Substance: ESTRADIOL
     Dosage: 2 MG, EVERY 90 DAYS
     Route: 067
  4. METFORMIN [Concomitant]
     Active Substance: METFORMIN HYDROCHLORIDE
     Indication: Diabetes mellitus
     Dosage: 1000 MG, 2X/DAY
     Route: 048
     Dates: start: 2000
  5. GLIPIZIDE [Concomitant]
     Active Substance: GLIPIZIDE
     Indication: Diabetes mellitus
     Dosage: 10 MG, 2X/DAY
     Route: 048
     Dates: start: 2012
  6. JANUVIA [Concomitant]
     Active Substance: SITAGLIPTIN PHOSPHATE
     Indication: Diabetes mellitus
     Dosage: 100 MG, 1X/DAY
     Route: 048
  7. TRULICITY [Concomitant]
     Active Substance: DULAGLUTIDE
     Indication: Diabetes mellitus
     Dosage: 0.75 MG, WEEKLY
     Route: 058
     Dates: start: 2019
  8. AMLODIPINE [Concomitant]
     Active Substance: AMLODIPINE BESYLATE
     Indication: Migraine
     Dosage: 5 MG, 1X/DAY
     Route: 048
     Dates: start: 1995
  9. LISINOPRIL [Concomitant]
     Active Substance: LISINOPRIL
     Indication: Hypertension
     Dosage: 20 MG, 2X/DAY
     Route: 048
     Dates: start: 2012
  10. CYMBALTA [Concomitant]
     Active Substance: DULOXETINE HYDROCHLORIDE
     Indication: Fibromyalgia
     Dosage: 80 MG, DAILY (60MG IN AM AND 20MG IN PM)
     Route: 048
     Dates: start: 2008
  11. CYMBALTA [Concomitant]
     Active Substance: DULOXETINE HYDROCHLORIDE
     Indication: Anxiety
  12. ATORVASTATIN [Concomitant]
     Active Substance: ATORVASTATIN
     Indication: Blood cholesterol abnormal
     Dosage: 40 MG, 1X/DAY AT NIGHT
     Route: 048
     Dates: start: 2019
  13. LORAZEPAM [Concomitant]
     Active Substance: LORAZEPAM
     Indication: Insomnia
     Dosage: 2 MG, 1X/DAY AT NIGHT
     Route: 048
     Dates: start: 2008
  14. GABAPENTIN [Concomitant]
     Active Substance: GABAPENTIN
     Indication: Fibromyalgia
     Dosage: 600 MG, 3X/DAY
     Route: 048
     Dates: start: 2014
  15. GABAPENTIN [Concomitant]
     Active Substance: GABAPENTIN
     Indication: Diabetic neuropathy
  16. MELOXICAM [Concomitant]
     Active Substance: MELOXICAM
     Indication: Osteoarthritis
     Dosage: 15 MG, 1X/DAY (IN AM)
     Route: 048
     Dates: start: 2015
  17. OMEPRAZOLE [Concomitant]
     Active Substance: OMEPRAZOLE
     Indication: Gastrooesophageal reflux disease
     Dosage: 40 MG, 2X/DAY
     Route: 048
     Dates: start: 2005
  18. ACYCLOVIR [Concomitant]
     Active Substance: ACYCLOVIR
     Indication: Rash vesicular
     Dosage: 200 MG, AS NEEDED (200MG FIVE TIMES DAILY FOR FIVE DAYS AS NEEDED)
     Dates: start: 2000
  19. PROAIR HFA [Concomitant]
     Active Substance: ALBUTEROL SULFATE
     Indication: Asthma
     Dosage: 2 PUFFS, 4X/DAY
     Route: 045
     Dates: start: 2005
  20. PROAIR HFA [Concomitant]
     Active Substance: ALBUTEROL SULFATE
     Indication: Vocal cord dysfunction
  21. DULERA [Concomitant]
     Active Substance: FORMOTEROL FUMARATE DIHYDRATE\MOMETASONE FUROATE
     Indication: Asthma
     Dosage: 2 PUFFS, 2X/DAY
     Route: 045
     Dates: start: 2005
  22. DULERA [Concomitant]
     Active Substance: FORMOTEROL FUMARATE DIHYDRATE\MOMETASONE FUROATE
     Indication: Chronic sinusitis
  23. FLUTICASONE [Concomitant]
     Active Substance: FLUTICASONE
     Indication: Chronic sinusitis
     Dosage: 100 UG, 1X/DAY (50MCG; NASAL SPRAY EACH NOSTRIL IN THE AM)
     Route: 045
     Dates: start: 2005
  24. HIZENTRA [Concomitant]
     Active Substance: HUMAN IMMUNOGLOBULIN G
     Indication: Immunodeficiency
     Dosage: 17 G, WEEKLY (85ML)
     Route: 058
     Dates: start: 201604
  25. DIETARY SUPPLEMENT [Concomitant]
     Active Substance: DIETARY SUPPLEMENT
     Indication: pH body fluid abnormal
     Dosage: UNK

REACTIONS (16)
  - Escherichia urinary tract infection [Not Recovered/Not Resolved]
  - Wrong technique in device usage process [Not Recovered/Not Resolved]
  - Blindness unilateral [Not Recovered/Not Resolved]
  - Optic nerve disorder [Unknown]
  - Expired device used [Unknown]
  - Mobility decreased [Unknown]
  - Decreased immune responsiveness [Unknown]
  - Loss of personal independence in daily activities [Unknown]
  - Chills [Unknown]
  - Mutism [Unknown]
  - Tremor [Unknown]
  - Dysgraphia [Unknown]
  - Post procedural complication [Unknown]
  - Fatigue [Unknown]
  - Asthenia [Unknown]
  - Thinking abnormal [Unknown]

NARRATIVE: CASE EVENT DATE: 20200801
